FAERS Safety Report 9233809 (Version 1)
Quarter: 2013Q2

REPORT INFORMATION
  Report Type: Spontaneous
  Country: US (occurrence: US)
  Receive Date: 20130416
  Receipt Date: 20130416
  Transmission Date: 20140414
  Serious: No
  Sender: FDA-Public Use
  Company Number: US-MYLANLABS-2012S1015970

PATIENT
  Age: 62 Year
  Sex: Female

DRUGS (2)
  1. NITROFURANTOIN MONOHYDRATE/MACROCRYSTALS CAPSULES [Suspect]
     Indication: CYSTITIS
     Route: 048
     Dates: start: 20120507, end: 20120517
  2. FUROSEMIDE [Concomitant]
     Indication: SWELLING
     Route: 048
     Dates: start: 201203

REACTIONS (1)
  - Dysgeusia [Not Recovered/Not Resolved]
